FAERS Safety Report 16771757 (Version 2)
Quarter: 2019Q3

REPORT INFORMATION
  Report Type: Spontaneous
  Country: ES (occurrence: ES)
  Receive Date: 20190904
  Receipt Date: 20190910
  Transmission Date: 20191005
  Serious: Yes (Other)
  Sender: FDA-Public Use
  Company Number: ES-PFIZER INC-2019376688

PATIENT
  Age: 55 Year
  Sex: Female

DRUGS (3)
  1. NEURONTIN [Suspect]
     Active Substance: GABAPENTIN
     Indication: PAIN
     Dosage: 2000 MG, UNK (STARTED 6 YEARS AGO )
  2. RIVOTRIL [Concomitant]
     Active Substance: CLONAZEPAM
     Indication: PROCEDURAL ANXIETY
     Dosage: 8 DF, UNK (DROPS)
  3. NEURONTIN [Suspect]
     Active Substance: GABAPENTIN
     Dosage: 1400 MG, UNK

REACTIONS (17)
  - Amnesia [Recovering/Resolving]
  - Vision blurred [Unknown]
  - Dyspepsia [Unknown]
  - Diplopia [Unknown]
  - Dry eye [Recovering/Resolving]
  - Dry throat [Unknown]
  - Constipation [Recovering/Resolving]
  - Paralysis [Unknown]
  - Fibromyalgia [Unknown]
  - Cough [Unknown]
  - Abdominal pain upper [Unknown]
  - Gastrointestinal inflammation [Unknown]
  - Dry mouth [Unknown]
  - Feeling abnormal [Unknown]
  - Nasal dryness [Unknown]
  - Throat irritation [Unknown]
  - Fatigue [Recovering/Resolving]
